FAERS Safety Report 4869939-7 (Version None)
Quarter: 2005Q4

REPORT INFORMATION
  Report Type: 
  Country: None (occurrence: None)
  Receive Date: 20051230
  Receipt Date: 20051208
  Transmission Date: 20060501
  Serious: Yes (Hospitalization, Other)
  Sender: FDA-Public Use
  Company Number: US-MERCK-0512USA01483

PATIENT
  Age: 72 Year
  Sex: Female
  Weight: 75 kg

DRUGS (9)
  1. PRILOSEC [Concomitant]
     Route: 065
  2. AMITRIPTYLINE HYDROCHLORIDE [Concomitant]
     Route: 065
  3. TRAZODONE HYDROCHLORIDE [Concomitant]
     Route: 065
  4. CHLORZOXAZONE [Concomitant]
     Route: 065
  5. VIOXX [Suspect]
     Indication: JOINT INJURY
     Route: 048
     Dates: start: 19990408, end: 20040901
  6. PREMARIN [Concomitant]
     Route: 065
  7. QUININE SULFATE [Concomitant]
     Route: 065
  8. ATENOLOL [Concomitant]
     Route: 065
  9. HYDROCHLOROTHIAZIDE [Concomitant]
     Route: 065

REACTIONS (7)
  - ANXIETY [None]
  - CARDIAC DISORDER [None]
  - DEPRESSION [None]
  - FOOT OPERATION [None]
  - MUSCULOSKELETAL DISORDER [None]
  - MYOCARDIAL INFARCTION [None]
  - WRIST FRACTURE [None]
